FAERS Safety Report 23291300 (Version 1)
Quarter: 2023Q4

REPORT INFORMATION
  Report Type: Spontaneous
  Country: US (occurrence: US)
  Receive Date: 20231213
  Receipt Date: 20231213
  Transmission Date: 20240110
  Serious: No
  Sender: FDA-Public Use
  Company Number: US-ALVOGEN-2023089139

PATIENT
  Age: 75 Year
  Sex: Female

DRUGS (6)
  1. FENTANYL [Suspect]
     Active Substance: FENTANYL\FENTANYL CITRATE
     Indication: Pain
     Dosage: EXPIRATION DATE: NOV-2023?S/N: 0129 62130715?MANUFACTURING DATE: 30-NOV-2021
     Dates: start: 20230129
  2. FENTANYL [Suspect]
     Active Substance: FENTANYL\FENTANYL CITRATE
     Indication: Pain
     Dosage: STRENGTH: 12.5 MCG
  3. OXYCODONE [Concomitant]
     Active Substance: OXYCODONE
     Indication: Pain
     Dosage: 10 MG EVERY FOUR HOURS
  4. OXYCODONE [Concomitant]
     Active Substance: OXYCODONE
     Indication: Pain
  5. OXYCODONE [Concomitant]
     Active Substance: OXYCODONE
     Indication: Pain
     Dosage: 1 TABLET IN COUPLE OF DAYS
  6. OXYCODONE [Concomitant]
     Active Substance: OXYCODONE
     Indication: Pain
     Dosage: ER

REACTIONS (1)
  - Prescribed underdose [Unknown]

NARRATIVE: CASE EVENT DATE: 20230129
